FAERS Safety Report 4846224-0 (Version None)
Quarter: 2005Q4

REPORT INFORMATION
  Report Type: 
  Country: None (occurrence: None)
  Receive Date: 20051130
  Receipt Date: 20051121
  Transmission Date: 20060501
  Serious: Yes (Life-Threatening)
  Sender: FDA-Public Use
  Company Number: TCI2005A04654

PATIENT
  Age: 78 Year
  Sex: Male

DRUGS (3)
  1. ACTOS [Suspect]
     Indication: DIABETES MELLITUS NON-INSULIN-DEPENDENT
     Dosage: 30 MG (30 MG, 1 IN 1 D) PER ORAL
     Route: 048
     Dates: start: 20050208, end: 20051101
  2. AMARYL [Concomitant]
  3. GLUFAST TAB. (MITIGLINIDE CALCIUM HYDRATE) [Concomitant]

REACTIONS (12)
  - ANOREXIA [None]
  - BILIARY NEOPLASM [None]
  - BLOOD ALKALINE PHOSPHATASE INCREASED [None]
  - BLOOD LACTATE DEHYDROGENASE INCREASED [None]
  - HAEMORRHAGIC DIATHESIS [None]
  - HEPATIC NEOPLASM [None]
  - JAUNDICE CHOLESTATIC [None]
  - LIVER DISORDER [None]
  - MALAISE [None]
  - PANCREATIC NEOPLASM [None]
  - PROTEIN INDUCED BY VITAMIN K ABSENCE OR ANTAGONIST II INCREASED [None]
  - WEIGHT DECREASED [None]
